FAERS Safety Report 6679451-0 (Version None)
Quarter: 2010Q2

REPORT INFORMATION
  Report Type: 
  Country: None (occurrence: None)
  Receive Date: 20100408
  Receipt Date: 20100325
  Transmission Date: 20101027
  Serious: No
  Sender: FDA-Public Use
  Company Number: 2010-00355

PATIENT
  Sex: Male

DRUGS (2)
  1. ZICAM COLD REMEDY GEL SWABS [Suspect]
     Dosage: (?) - SEVERAL OCCASIONS
     Dates: start: 20070101, end: 20070201
  2. . [Concomitant]

REACTIONS (1)
  - ANOSMIA [None]
